FAERS Safety Report 17964834 (Version 1)
Quarter: 2020Q2

REPORT INFORMATION
  Report Type: Report from Study
  Country: US (occurrence: US)
  Receive Date: 20200630
  Receipt Date: 20200630
  Transmission Date: 20200714
  Serious: Yes (Other)
  Sender: FDA-Public Use
  Company Number: US-PUMA BIOTECHNOLOGY, LTD.-2020US003243

PATIENT

DRUGS (2)
  1. IMODIUM [Concomitant]
     Active Substance: LOPERAMIDE HYDROCHLORIDE
     Indication: PROPHYLAXIS AGAINST DIARRHOEA
  2. NERLYNX [Suspect]
     Active Substance: NERATINIB
     Indication: BREAST CANCER FEMALE
     Dosage: 40 MG, DAILY
     Route: 048
     Dates: start: 20200608

REACTIONS (3)
  - Renal impairment [Unknown]
  - Diarrhoea [Unknown]
  - Underdose [Unknown]

NARRATIVE: CASE EVENT DATE: 202006
